FAERS Safety Report 12600009 (Version 2)
Quarter: 2016Q3

REPORT INFORMATION
  Report Type: Spontaneous
  Country: CH (occurrence: NL)
  Receive Date: 20160727
  Receipt Date: 20160902
  Transmission Date: 20161109
  Serious: Yes (Hospitalization)
  Sender: FDA-Public Use
  Company Number: CH-LPDUSPRD-20160627

PATIENT
  Age: 44 Year
  Sex: Female

DRUGS (1)
  1. FERINJECT [Suspect]
     Active Substance: FERRIC CARBOXYMALTOSE
     Dosage: 1000 MG
     Route: 058
     Dates: start: 20160526, end: 20160526

REACTIONS (10)
  - Tremor [Unknown]
  - Body temperature increased [Unknown]
  - Incorrect route of drug administration [Unknown]
  - Muscle spasms [Unknown]
  - Chills [Unknown]
  - Muscle tightness [Unknown]
  - Extravasation [Not Recovered/Not Resolved]
  - Tachycardia [Unknown]
  - Palpitations [Unknown]
  - Feeling abnormal [Unknown]

NARRATIVE: CASE EVENT DATE: 20160526
